FAERS Safety Report 20959826 (Version 1)
Quarter: 2022Q2

REPORT INFORMATION
  Report Type: Spontaneous
  Country: IN (occurrence: IN)
  Receive Date: 20220614
  Receipt Date: 20220614
  Transmission Date: 20220721
  Serious: Yes (Hospitalization, Other)
  Sender: FDA-Public Use
  Company Number: None

PATIENT
  Age: 6 Decade
  Sex: Male

DRUGS (5)
  1. DEXAMETHASONE [Suspect]
     Active Substance: DEXAMETHASONE
     Indication: COVID-19 pneumonia
     Dosage: 4 MILLIGRAM
     Route: 042
  2. PREDNISOLONE [Suspect]
     Active Substance: PREDNISOLONE
     Indication: COVID-19 pneumonia
     Dosage: 20 MILLIGRAM (WITH 10 MG WEEKLY TAPERS)
     Route: 048
  3. PREDNISOLONE [Suspect]
     Active Substance: PREDNISOLONE
     Dosage: WITH 10 MG WEEKLY TAPERS
     Route: 048
  4. OXYGEN [Suspect]
     Active Substance: OXYGEN
     Indication: COVID-19 pneumonia
     Dosage: UNK
     Route: 065
  5. REMDESIVIR [Concomitant]
     Active Substance: REMDESIVIR
     Indication: COVID-19 pneumonia
     Dosage: UNK
     Route: 065

REACTIONS (14)
  - Vitreous detachment [Recovered/Resolved]
  - Orbital granuloma [Recovered/Resolved]
  - Retinal aneurysm [Recovered/Resolved]
  - Subretinal hyperreflective exudation [Recovered/Resolved]
  - Retinal haemorrhage [Recovered/Resolved]
  - Klebsiella infection [Unknown]
  - Cryptococcosis [Recovered/Resolved]
  - Mycotic endophthalmitis [Recovered/Resolved]
  - Pyelonephritis [Unknown]
  - Sepsis [Unknown]
  - Chorioretinitis [Recovered/Resolved]
  - Vitritis [Recovered/Resolved]
  - Cystoid macular oedema [Recovered/Resolved]
  - Off label use [Unknown]
